FAERS Safety Report 9458624 (Version 6)
Quarter: 2015Q2

REPORT INFORMATION
  Report Type: Report from Study
  Country: FR (occurrence: FR)
  Receive Date: 20130814
  Receipt Date: 20150412
  Transmission Date: 20150821
  Serious: Yes (Hospitalization)
  Sender: FDA-Public Use
  Company Number: PHHO2013FR002372

PATIENT
  Age: 14 Year
  Sex: Male
  Weight: 36.4 kg

DRUGS (58)
  1. DEXAMETHASONE. [Concomitant]
     Active Substance: DEXAMETHASONE
     Dosage: 2 MG, TID
     Route: 048
  2. DEXAMETHASONE. [Concomitant]
     Active Substance: DEXAMETHASONE
     Dosage: 1.25 MG, QD
     Route: 048
  3. ADRIAMYCIN [Concomitant]
     Active Substance: DOXORUBICIN HYDROCHLORIDE
     Dosage: 31 UNK, UNK
     Route: 065
     Dates: start: 20130923
  4. L-ASP [Concomitant]
     Active Substance: ASPARAGINASE
     Dosage: 12600 IU, UNK
     Route: 065
     Dates: start: 20130903
  5. PLITICAN [Concomitant]
     Active Substance: ALIZAPRIDE HYDROCHLORIDE
     Indication: VOMITING
     Dosage: 50 MG, UNK
     Route: 042
     Dates: start: 20130301, end: 20130302
  6. IFOSFAMIDE. [Concomitant]
     Active Substance: IFOSFAMIDE
     Indication: PRODUCT USED FOR UNKNOWN INDICATION
     Dosage: 5000 MG, UNK
     Route: 065
     Dates: start: 20130327, end: 20130329
  7. CGP 57148B [Suspect]
     Active Substance: IMATINIB MESYLATE
     Dosage: 400 MG, QD
     Route: 048
     Dates: start: 20130703
  8. MTX [Suspect]
     Active Substance: METHOTREXATE SODIUM
     Dosage: 25 MG, QW (25 MG/WEEK IN 1 DOSE)
     Route: 048
     Dates: start: 20131127, end: 20131203
  9. 6-MP [Suspect]
     Active Substance: MERCAPTOPURINE
     Dosage: 50 MG/DAY IN 1 DOSE
     Route: 048
     Dates: start: 20131215
  10. DEXAMETHASONE. [Concomitant]
     Active Substance: DEXAMETHASONE
     Dosage: 1.25 MG, BID
     Route: 048
  11. VINCRISTINE [Concomitant]
     Active Substance: VINCRISTINE
     Dosage: 1.85 MG, QD
     Route: 042
     Dates: start: 20130910
  12. BACTRIM [Concomitant]
     Active Substance: SULFAMETHOXAZOLE\TRIMETHOPRIM
     Dosage: 800 MG, QW3
     Route: 048
     Dates: start: 20130606
  13. DAKINS FULL [Concomitant]
     Active Substance: SODIUM HYPOCHLORITE
     Indication: PARONYCHIA
     Dosage: UNK
     Route: 065
     Dates: start: 20101003, end: 20101010
  14. LACTULOSE. [Concomitant]
     Active Substance: LACTULOSE
     Indication: PRODUCT USED FOR UNKNOWN INDICATION
     Dosage: 1.2X/I, 3X/I
     Route: 048
     Dates: start: 20130330, end: 20130331
  15. LARGACTIL [Concomitant]
     Active Substance: CHLORPROMAZINE
     Dosage: 12 MG, QD (12MG IVSE/24H)
     Route: 042
  16. CGP 57148B [Suspect]
     Active Substance: IMATINIB MESYLATE
     Dosage: 400 MG, QD
     Route: 048
     Dates: end: 20130726
  17. MTX [Suspect]
     Active Substance: METHOTREXATE SODIUM
     Indication: ACUTE LYMPHOCYTIC LEUKAEMIA
     Dosage: 12 MG, UNK
     Route: 048
     Dates: start: 20130227
  18. ADRIAMYCIN [Concomitant]
     Active Substance: DOXORUBICIN HYDROCHLORIDE
     Dosage: 31 MG, QD
     Route: 065
     Dates: start: 20130910
  19. ZOPHREN [Concomitant]
     Active Substance: ONDANSETRON
     Dosage: 8 MG, QD
     Route: 042
     Dates: start: 20130326, end: 20130329
  20. LARGACTIL [Concomitant]
     Active Substance: CHLORPROMAZINE
     Dosage: 25 MG, QD (25MG IVSE/24H)
     Route: 042
  21. ETOPOSIDE. [Concomitant]
     Active Substance: ETOPOSIDE
     Indication: PRODUCT USED FOR UNKNOWN INDICATION
     Dosage: 122 MG, UNK (TOTAL 5 DOSES)
     Route: 042
     Dates: start: 20130417, end: 20130419
  22. CGP 57148B [Suspect]
     Active Substance: IMATINIB MESYLATE
     Indication: ACUTE LYMPHOCYTIC LEUKAEMIA
     Dosage: 90 MG, QD
     Route: 048
     Dates: start: 20130115, end: 20130613
  23. 6-MP [Suspect]
     Active Substance: MERCAPTOPURINE
     Indication: ACUTE LYMPHOCYTIC LEUKAEMIA
     Dosage: 62.5 MG/DAY IN 1 DOSE
     Route: 048
     Dates: start: 20131127, end: 20131203
  24. DEXAMETHASONE. [Concomitant]
     Active Substance: DEXAMETHASONE
     Indication: ACUTE LYMPHOCYTIC LEUKAEMIA
     Dosage: 4 MG, TID
     Route: 048
  25. DEXAMETHASONE. [Concomitant]
     Active Substance: DEXAMETHASONE
     Dosage: 2.36 MG, QD
     Route: 048
     Dates: start: 20130921, end: 20130924
  26. DEXAMETHASONE. [Concomitant]
     Active Substance: DEXAMETHASONE
     Dosage: 1.2 MG, QD
     Route: 048
     Dates: start: 20130925, end: 20130927
  27. VINCRISTINE [Concomitant]
     Active Substance: VINCRISTINE
     Dosage: 1.9 MG, QD
     Route: 042
     Dates: start: 20130923
  28. ADRIAMYCIN [Concomitant]
     Active Substance: DOXORUBICIN HYDROCHLORIDE
     Indication: ACUTE LYMPHOCYTIC LEUKAEMIA
     Dosage: 32 MG, QD
     Route: 065
     Dates: start: 20130903
  29. BACTRIM [Concomitant]
     Active Substance: SULFAMETHOXAZOLE\TRIMETHOPRIM
     Dosage: 800 MG, QD
     Route: 042
     Dates: start: 20130308, end: 20130308
  30. ZOPHREN [Concomitant]
     Active Substance: ONDANSETRON
     Indication: VOMITING
     Dosage: 16 MG, QD (24H) (^USE 8 MG BEFORED DECHALLENGING^)
     Route: 042
     Dates: start: 20130227, end: 20130304
  31. ATARAX [Concomitant]
     Active Substance: HYDROXYZINE\HYDROXYZINE HYDROCHLORIDE
     Indication: PRODUCT USED FOR UNKNOWN INDICATION
     Dosage: 25 MG, QD
     Route: 048
     Dates: start: 20130302, end: 20130303
  32. DIFFU K [Concomitant]
     Active Substance: POTASSIUM CHLORIDE
     Indication: HYPOKALAEMIA
     Dosage: 600 MG, Q8H
     Route: 048
     Dates: start: 20131204
  33. BACTRIM [Concomitant]
     Active Substance: SULFAMETHOXAZOLE\TRIMETHOPRIM
     Indication: PROPHYLAXIS
     Dosage: 800 MG, QD
     Route: 042
     Dates: start: 20130227, end: 20130227
  34. PLITICAN [Concomitant]
     Active Substance: ALIZAPRIDE HYDROCHLORIDE
     Dosage: 50 MG, UNK
     Route: 042
     Dates: start: 20130304, end: 20130304
  35. GELOX [Concomitant]
     Active Substance: ALUMINUM HYDROXIDE\MAGNESIUM HYDROXIDE\MONTMORILLONITE
     Indication: PRODUCT USED FOR UNKNOWN INDICATION
     Dosage: 1 DF, UNK (1 DOSE AFTER EACH MED)
     Route: 048
     Dates: start: 20130330
  36. FUNGIZONE [Concomitant]
     Active Substance: AMPHOTERICIN B
     Indication: PRODUCT USED FOR UNKNOWN INDICATION
     Dosage: 1 DF, (1 CAC) UNK
     Route: 065
     Dates: start: 20130427
  37. CGP 57148B [Suspect]
     Active Substance: IMATINIB MESYLATE
     Dosage: 400 MG, (300 MG AND 400 MG ALTERNATIVELY)
     Route: 048
     Dates: start: 20131127, end: 20140101
  38. L-ASP [Concomitant]
     Active Substance: ASPARAGINASE
     Dosage: 12200 IU, UNK
     Route: 065
     Dates: start: 20130916
  39. L-ASP [Concomitant]
     Active Substance: ASPARAGINASE
     Dosage: 12200 IU, UNK
     Route: 065
     Dates: start: 20130919
  40. LARGACTIL [Concomitant]
     Active Substance: CHLORPROMAZINE
     Indication: PRODUCT USED FOR UNKNOWN INDICATION
     Dosage: 17 MG, QD (17MG IVSE/24H)
     Route: 042
  41. DEXAMETHASONE. [Concomitant]
     Active Substance: DEXAMETHASONE
     Dosage: 4.2 MG, TID
     Route: 048
     Dates: start: 20130827, end: 20130916
  42. L-ASP [Concomitant]
     Active Substance: ASPARAGINASE
     Dosage: 12600 IU, UNK
     Route: 065
     Dates: start: 20130906
  43. AUGMENTIN [Concomitant]
     Active Substance: AMOXICILLIN\CLAVULANATE POTASSIUM
     Indication: COUGH
     Dosage: UNK
     Route: 065
     Dates: start: 20130606, end: 201306
  44. BACTRIM [Concomitant]
     Active Substance: SULFAMETHOXAZOLE\TRIMETHOPRIM
     Indication: BACTERIAL INFECTION
     Dosage: 800 MG, QD
     Route: 042
     Dates: start: 20130301, end: 20130301
  45. CYTARABINE. [Concomitant]
     Active Substance: CYTARABINE
     Indication: PRODUCT USED FOR UNKNOWN INDICATION
     Dosage: 400 MG, UNK
     Route: 048
  46. METHYLPREDNISOLONE. [Concomitant]
     Active Substance: METHYLPREDNISOLONE
     Indication: PRODUCT USED FOR UNKNOWN INDICATION
     Dosage: 152 MG, UNK
     Route: 048
  47. UROMITEXAN [Concomitant]
     Active Substance: MESNA
     Indication: PRODUCT USED FOR UNKNOWN INDICATION
     Dosage: 260 MG, QD
     Route: 042
     Dates: start: 20120228, end: 20130602
  48. CHIBRO-CADRON [Concomitant]
     Active Substance: DEXAMETHASONE\NEOMYCIN SULFATE
     Indication: ANTIINFLAMMATORY THERAPY
     Dosage: 1 ^TOUTTE/EYE 4 /DAY^
     Route: 065
     Dates: start: 20130415, end: 20130417
  49. LANSOYL [Concomitant]
     Active Substance: MINERAL OIL
     Indication: PRODUCT USED FOR UNKNOWN INDICATION
     Dosage: 1 DF, QD (1 DOSE PER DAY)
     Route: 048
  50. INEXIUM//ESOMEPRAZOLE MAGNESIUM [Concomitant]
     Active Substance: ESOMEPRAZOLE MAGNESIUM
     Indication: PRODUCT USED FOR UNKNOWN INDICATION
     Dosage: 20 MG, QD
     Route: 042
     Dates: start: 20130429, end: 20130501
  51. CGP 57148B [Suspect]
     Active Substance: IMATINIB MESYLATE
     Dosage: UNK
     Route: 048
     Dates: start: 20130827, end: 20131007
  52. DEXAMETHASONE. [Concomitant]
     Active Substance: DEXAMETHASONE
     Dosage: 9.1 MG, TID
     Route: 048
     Dates: start: 20130917, end: 20130920
  53. VINCRISTINE [Concomitant]
     Active Substance: VINCRISTINE
     Indication: ACUTE LYMPHOCYTIC LEUKAEMIA
     Dosage: 1.9 MG, QD
     Route: 042
     Dates: start: 20130903
  54. L-ASP [Concomitant]
     Active Substance: ASPARAGINASE
     Indication: ACUTE LYMPHOCYTIC LEUKAEMIA
     Dosage: 31000 IU, UNK
     Route: 065
     Dates: start: 20130304
  55. CPM [Concomitant]
     Indication: PRODUCT USED FOR UNKNOWN INDICATION
     Dosage: 250 MG, (250 MG X 5 DOSES)1250 MG
     Route: 065
     Dates: start: 20130228, end: 20130302
  56. NUBAIN [Concomitant]
     Active Substance: NALBUPHINE HYDROCHLORIDE
     Indication: ANALGESIC THERAPY
     Dosage: 28 MG, QD (24H) IVSE
     Route: 065
     Dates: start: 20131205, end: 20131205
  57. OGASTRO [Concomitant]
     Indication: ABDOMINAL PAIN UPPER
     Dosage: 20 MG, QD
     Route: 048
     Dates: start: 20130326, end: 20130412
  58. ORAMORPH SR SUSTAINED RELEASE [Concomitant]
     Active Substance: MORPHINE SULFATE
     Indication: PRODUCT USED FOR UNKNOWN INDICATION
     Dosage: 10 MG, QD
     Route: 048
     Dates: start: 20130326, end: 20130326

REACTIONS (20)
  - Lung disorder [Recovered/Resolved]
  - Febrile bone marrow aplasia [Recovered/Resolved]
  - Anaemia [Recovered/Resolved]
  - Anaemia [Recovered/Resolved]
  - Thrombocytopenia [Recovered/Resolved]
  - Thrombocytopenia [Recovered/Resolved]
  - Erythema multiforme [Recovered/Resolved]
  - Mucosal inflammation [Recovered/Resolved]
  - Bronchopneumonia [Recovered/Resolved]
  - Febrile bone marrow aplasia [Recovered/Resolved]
  - Osteonecrosis [Not Recovered/Not Resolved]
  - Febrile bone marrow aplasia [Recovered/Resolved]
  - Hypoxia [Recovered/Resolved]
  - Febrile bone marrow aplasia [Recovered/Resolved]
  - Thrombocytopenia [Recovered/Resolved]
  - Herpes virus infection [Recovered/Resolved]
  - Febrile bone marrow aplasia [Recovered/Resolved]
  - Anaemia [Recovered/Resolved]
  - Febrile bone marrow aplasia [Recovered/Resolved]
  - Febrile bone marrow aplasia [Recovered/Resolved]

NARRATIVE: CASE EVENT DATE: 20130130
